FAERS Safety Report 14148860 (Version 1)
Quarter: 2017Q4

REPORT INFORMATION
  Report Type: Spontaneous
  Country: US (occurrence: US)
  Receive Date: 20171101
  Receipt Date: 20171101
  Transmission Date: 20180321
  Serious: Yes (Hospitalization)
  Sender: FDA-Public Use
  Company Number: US-PFIZER INC-2017469464

PATIENT
  Age: 79 Year
  Sex: Female
  Weight: 67.13 kg

DRUGS (9)
  1. SINEMET [Concomitant]
     Active Substance: CARBIDOPA\LEVODOPA
     Indication: RESTLESS LEGS SYNDROME
     Dosage: 1 DF ([CARBIDOPA:25MG]/[LEVODOPA:100MG]), DAILY
  2. PRAVACHOL [Concomitant]
     Active Substance: PRAVASTATIN SODIUM
     Indication: BLOOD CHOLESTEROL ABNORMAL
     Dosage: 20MG ONCE A DAY AT NIGHT
  3. DOXEPIN [Concomitant]
     Active Substance: DOXEPIN
     Indication: PSORIASIS
     Dosage: 25 MG, DAILY
  4. DOXEPIN [Concomitant]
     Active Substance: DOXEPIN
     Indication: PRURITUS
  5. CELEXA [Concomitant]
     Active Substance: CITALOPRAM HYDROBROMIDE
     Indication: DEPRESSION
     Dosage: TWO 20MG TABLETS AT NIGHT
  6. PROTONIX [Concomitant]
     Active Substance: PANTOPRAZOLE SODIUM
     Indication: GASTROOESOPHAGEAL REFLUX DISEASE
     Dosage: 40MG IN THE MORNING
  7. LYRICA [Suspect]
     Active Substance: PREGABALIN
     Indication: MIGRAINE
     Dosage: 200 MG, UNK
  8. BUSPAR [Concomitant]
     Active Substance: BUSPIRONE HYDROCHLORIDE
     Indication: DEPRESSION
     Dosage: 10 MG, 2X/DAY
  9. CELEXA [Concomitant]
     Active Substance: CITALOPRAM HYDROBROMIDE
     Indication: ANXIETY

REACTIONS (3)
  - Product use in unapproved indication [Unknown]
  - Fall [Recovered/Resolved with Sequelae]
  - Rib fracture [Recovering/Resolving]

NARRATIVE: CASE EVENT DATE: 20171013
